FAERS Safety Report 7363247-0 (Version None)
Quarter: 2011Q1

REPORT INFORMATION
  Report Type: 
  Country: None (occurrence: None)
  Receive Date: 20110321
  Receipt Date: 20110221
  Transmission Date: 20110831
  Serious: No
  Sender: FDA-Public Use
  Company Number: US-B.I. PHARMACEUTICALS,INC./RIDGEFIELD-2011-BP-06444BP

PATIENT
  Sex: Female

DRUGS (3)
  1. PRADAXA [Suspect]
     Indication: ATRIAL FIBRILLATION
     Route: 048
     Dates: start: 20110101
  2. SYNTHROID [Concomitant]
     Indication: HYPOTHYROIDISM
  3. TOPROL-XL [Concomitant]
     Indication: TACHYCARDIA

REACTIONS (2)
  - DIZZINESS [None]
  - NIGHTMARE [None]
